FAERS Safety Report 14475909 (Version 2)
Quarter: 2018Q1

REPORT INFORMATION
  Report Type: Report from Study
  Country: AU (occurrence: AU)
  Receive Date: 20180201
  Receipt Date: 20180208
  Transmission Date: 20180509
  Serious: No
  Sender: FDA-Public Use
  Company Number: AU-OTSUKA-2018_001806

PATIENT
  Sex: Female

DRUGS (1)
  1. TOLVAPTAN [Suspect]
     Active Substance: TOLVAPTAN
     Indication: CONGENITAL CYSTIC KIDNEY DISEASE
     Dosage: UNK
     Route: 065

REACTIONS (7)
  - Blood creatinine increased [Unknown]
  - Headache [Unknown]
  - Skin cancer [Unknown]
  - Kidney enlargement [Unknown]
  - Thirst [Unknown]
  - Haemoglobin increased [Unknown]
  - Pain [Unknown]

NARRATIVE: CASE EVENT DATE: 20171118
